FAERS Safety Report 7687380-9 (Version None)
Quarter: 2011Q3

REPORT INFORMATION
  Report Type: 
  Country: None (occurrence: None)
  Receive Date: 20110816
  Receipt Date: 20110812
  Transmission Date: 20111222
  Serious: Yes (Hospitalization)
  Sender: FDA-Public Use
  Company Number: AR-ABBOTT-11P-007-0842918-00

PATIENT
  Sex: Female

DRUGS (2)
  1. LAMOTRIGINE [Concomitant]
     Indication: PRODUCT USED FOR UNKNOWN INDICATION
     Route: 048
     Dates: start: 20110601
  2. DIVALPROEX SODIUM [Suspect]
     Indication: EPILEPSY
     Route: 048
     Dates: start: 20010101

REACTIONS (2)
  - OEDEMA PERIPHERAL [None]
  - HIP SURGERY [None]
